FAERS Safety Report 9788623 (Version 3)
Quarter: 2014Q1

REPORT INFORMATION
  Report Type: Spontaneous
  Country: SE (occurrence: SE)
  Receive Date: 20131230
  Receipt Date: 20140319
  Transmission Date: 20141002
  Serious: Yes (Other)
  Sender: FDA-Public Use
  Company Number: PHHY2013SE152979

PATIENT
  Age: 69 Year
  Sex: Male

DRUGS (11)
  1. ZOMETA [Suspect]
     Indication: METASTASES TO BONE
     Dosage: UNK UKN, UNK
     Route: 042
  2. ZOMETA [Suspect]
     Dosage: 9 MG/ML, EVERY 3 WEEKS
     Route: 042
     Dates: start: 201306
  3. ZOMETA [Suspect]
     Dosage: 9 MG/ML, EVERY 3 WEEKS
     Route: 042
     Dates: start: 201310
  4. KALCIPOS-D [Concomitant]
     Dosage: UNK UKN, UNK
  5. PREDNISOLONE [Concomitant]
     Dosage: UNK UKN, UNK
  6. ZOPICLONE [Concomitant]
     Dosage: UNK UKN, UNK
  7. DOCETAXEL [Concomitant]
     Dosage: UNK UKN, UNK
  8. BETAPRED [Concomitant]
     Dosage: UNK UKN, UNK
  9. ZOLADEX [Concomitant]
     Dosage: UNK UKN, UNK
  10. PRIMPERAN [Concomitant]
     Dosage: UNK UKN, UNK
  11. CITODON [Concomitant]
     Dosage: UNK UKN, UNK

REACTIONS (4)
  - Osteonecrosis of jaw [Not Recovered/Not Resolved]
  - Swelling face [Unknown]
  - Infection [Unknown]
  - Exposed bone in jaw [Unknown]
